FAERS Safety Report 25825884 (Version 2)
Quarter: 2025Q4

REPORT INFORMATION
  Report Type: Report from Study
  Country: US (occurrence: US)
  Receive Date: 20250919
  Receipt Date: 20251017
  Transmission Date: 20260118
  Serious: No
  Sender: MALLINCKRODT
  Company Number: US-MALLINCKRODT-MNK202505336

PATIENT
  Sex: Female

DRUGS (2)
  1. CORTICOTROPIN [Suspect]
     Active Substance: CORTICOTROPIN
     Indication: Systemic lupus erythematosus
     Dosage: 80 UNITS
  2. CORTICOTROPIN [Suspect]
     Active Substance: CORTICOTROPIN
     Dosage: 40 UNITS

REACTIONS (10)
  - Heart rate increased [Recovering/Resolving]
  - Ear dryness [Unknown]
  - Nasal dryness [Unknown]
  - Dry throat [Unknown]
  - Middle ear effusion [Unknown]
  - Eye pruritus [Not Recovered/Not Resolved]
  - Pharyngeal swelling [Unknown]
  - Initial insomnia [Recovering/Resolving]
  - Abdominal distension [Recovering/Resolving]
  - Fatigue [Recovering/Resolving]
